FAERS Safety Report 8620627 (Version 2)
Quarter: 2013Q2

REPORT INFORMATION
  Report Type: Spontaneous
  Country: US (occurrence: US)
  Receive Date: 20120618
  Receipt Date: 20130521
  Transmission Date: 20140414
  Serious: No
  Sender: FDA-Public Use
  Company Number: US-TEVA-329401USA

PATIENT
  Sex: Female

DRUGS (4)
  1. ACTIQ [Suspect]
     Indication: NEURALGIA
     Route: 002
  2. ACTIQ [Suspect]
     Indication: OSTEOPOROSIS
  3. ACTIQ [Suspect]
     Indication: SICKLE CELL ANAEMIA
  4. TYLOX [Concomitant]
     Dosage: 30 MILLIGRAM DAILY;
     Route: 048

REACTIONS (6)
  - Pain [Not Recovered/Not Resolved]
  - Off label use [Unknown]
  - Drug ineffective [Unknown]
  - Headache [Unknown]
  - Oral pain [Unknown]
  - Tooth extraction [Unknown]
